FAERS Safety Report 6571658-6 (Version None)
Quarter: 2010Q1

REPORT INFORMATION
  Report Type: 
  Country: None (occurrence: None)
  Receive Date: 20100205
  Receipt Date: 20100128
  Transmission Date: 20100710
  Serious: Yes (Other)
  Sender: FDA-Public Use
  Company Number: PHHY2010US05058

PATIENT
  Sex: Male

DRUGS (2)
  1. CLOZARIL [Suspect]
     Indication: PSYCHOTIC DISORDER
     Dosage: 450 MG, QMO
     Route: 048
     Dates: start: 20071001
  2. DEPAKOTE [Concomitant]
     Dosage: BID

REACTIONS (3)
  - AGGRESSION [None]
  - AGITATION [None]
  - CONVULSION [None]
